FAERS Safety Report 6708348-2 (Version None)
Quarter: 2010Q2

REPORT INFORMATION
  Report Type: 
  Country: None (occurrence: None)
  Receive Date: 20100503
  Receipt Date: 20091119
  Transmission Date: 20101027
  Serious: No
  Sender: FDA-Public Use
  Company Number: US-ASTRAZENECA-2009SE27612

PATIENT
  Age: 677 Month
  Sex: Male
  Weight: 79.4 kg

DRUGS (3)
  1. NEXIUM [Suspect]
     Route: 048
     Dates: end: 20090801
  2. CRESTOR [Suspect]
     Route: 048
     Dates: end: 20090801
  3. CRESTOR [Suspect]
     Route: 048
     Dates: start: 20091012

REACTIONS (1)
  - NECK PAIN [None]
